FAERS Safety Report 25830115 (Version 1)
Quarter: 2025Q3

REPORT INFORMATION
  Report Type: Spontaneous
  Country: CA (occurrence: CA)
  Receive Date: 20250922
  Receipt Date: 20250922
  Transmission Date: 20251020
  Serious: Yes (Other)
  Sender: ACCORD
  Company Number: None

PATIENT
  Age: 84 Year
  Sex: Female

DRUGS (15)
  1. ROSUVASTATIN CALCIUM [Suspect]
     Active Substance: ROSUVASTATIN CALCIUM
     Indication: Haemorrhagic stroke
     Route: 048
  2. CANDESARTAN [Suspect]
     Active Substance: CANDESARTAN
     Indication: Hypertension
     Route: 048
  3. BETAHISTINE [Suspect]
     Active Substance: BETAHISTINE
     Indication: Vertigo positional
  4. BISOPROLOL [Suspect]
     Active Substance: BISOPROLOL
     Indication: Product used for unknown indication
  5. LEVOTHYROXINE [Suspect]
     Active Substance: LEVOTHYROXINE
     Indication: Hypothyroidism
  6. METOCLOPRAMIDE [Suspect]
     Active Substance: METOCLOPRAMIDE
     Indication: Diverticulitis
  7. RISEDRONATE SODIUM [Suspect]
     Active Substance: RISEDRONATE SODIUM
     Indication: Osteoporosis
  8. TIMOLOL [Suspect]
     Active Substance: TIMOLOL
     Indication: Glaucoma
  9. VITAMIN D [Suspect]
     Active Substance: VITAMIN D NOS
     Indication: Osteoporosis
  10. RISEDRONATE SODIUM [Suspect]
     Active Substance: RISEDRONATE SODIUM
     Indication: Osteoporosis
  11. RISEDRONATE SODIUM [Suspect]
     Active Substance: RISEDRONATE SODIUM
     Indication: Osteoporosis
  12. METOCLOPRAMIDE [Suspect]
     Active Substance: METOCLOPRAMIDE
     Indication: Diverticulitis
  13. BETAHISTINE [Suspect]
     Active Substance: BETAHISTINE
     Indication: Vertigo positional
  14. BETAHISTINE [Suspect]
     Active Substance: BETAHISTINE
     Indication: Vertigo positional
  15. BETAHISTINE [Suspect]
     Active Substance: BETAHISTINE
     Indication: Vertigo positional

REACTIONS (24)
  - Dizziness [Unknown]
  - Abdominal distension [Unknown]
  - Arthralgia [Unknown]
  - Calcium deficiency [Unknown]
  - Cognitive disorder [Unknown]
  - Constipation [Unknown]
  - Decreased appetite [Unknown]
  - Depressed mood [Unknown]
  - Dry mouth [Unknown]
  - Eye pruritus [Unknown]
  - Fall [Unknown]
  - Fatigue [Unknown]
  - Gait disturbance [Unknown]
  - General physical health deterioration [Unknown]
  - Head injury [Unknown]
  - Hypotension [Unknown]
  - Insomnia [Unknown]
  - Lacrimation increased [Unknown]
  - Loss of personal independence in daily activities [Unknown]
  - Nausea [Unknown]
  - Parkinson^s disease [Unknown]
  - Psychiatric symptom [Unknown]
  - Vitamin B12 deficiency [Unknown]
  - Vomiting [Unknown]
